FAERS Safety Report 7597000-X (Version None)
Quarter: 2011Q3

REPORT INFORMATION
  Report Type: 
  Country: None (occurrence: None)
  Receive Date: 20110708
  Receipt Date: 20110630
  Transmission Date: 20111222
  Serious: Yes (Hospitalization, Other)
  Sender: FDA-Public Use
  Company Number: US-JNJFOC-20110701149

PATIENT
  Sex: Female
  Weight: 74.84 kg

DRUGS (2)
  1. ENABLEX [Concomitant]
     Indication: HYPERTONIC BLADDER
     Route: 048
  2. ELMIRON [Suspect]
     Indication: CYSTITIS INTERSTITIAL
     Route: 048

REACTIONS (5)
  - BLOOD CHOLESTEROL INCREASED [None]
  - DEPRESSION [None]
  - ENDOMETRIOSIS [None]
  - ASTHMA [None]
  - SINUSITIS [None]
